FAERS Safety Report 13731433 (Version 2)
Quarter: 2017Q3

REPORT INFORMATION
  Report Type: Report from Study
  Country: JP (occurrence: JP)
  Receive Date: 20170707
  Receipt Date: 20170717
  Transmission Date: 20171127
  Serious: Yes (Life-Threatening, Hospitalization, Disabling, Other)
  Sender: FDA-Public Use
  Company Number: JP-B.I. PHARMACEUTICALS,INC./RIDGEFIELD-2017-NB-002975

PATIENT
  Age: 79 Year
  Sex: Male
  Weight: 65 kg

DRUGS (3)
  1. PRADAXA [Suspect]
     Active Substance: DABIGATRAN ETEXILATE MESYLATE
     Indication: ATRIAL FIBRILLATION
     Route: 048
     Dates: end: 20170530
  2. CAMSHIA [Concomitant]
     Active Substance: AMLODIPINE BESYLATE\CANDESARTAN CILEXETIL
     Indication: HYPERTENSION
     Route: 048
  3. MYSLEE [Concomitant]
     Active Substance: ZOLPIDEM TARTRATE
     Indication: INSOMNIA
     Route: 048

REACTIONS (7)
  - Dizziness [Recovered/Resolved]
  - Brain oedema [Recovered/Resolved]
  - Fall [Recovered/Resolved]
  - Cerebral haemorrhage [Recovered/Resolved with Sequelae]
  - Brain contusion [Recovered/Resolved with Sequelae]
  - Subarachnoid haemorrhage [Recovered/Resolved with Sequelae]
  - Extradural haematoma [Recovered/Resolved with Sequelae]

NARRATIVE: CASE EVENT DATE: 20170530
